FAERS Safety Report 8559487-5 (Version None)
Quarter: 2012Q3

REPORT INFORMATION
  Report Type: 
  Country: None (occurrence: None)
  Receive Date: 20120802
  Receipt Date: 20120727
  Transmission Date: 20120928
  Serious: Yes (Death)
  Sender: FDA-Public Use
  Company Number: IN-JNJFOC-20120800162

PATIENT
  Sex: Male

DRUGS (1)
  1. DORIBAX [Suspect]
     Indication: PYELONEPHRITIS
     Dosage: 2 VIALS HAD BEEN ADMINISTERED TILL THE DATE OF REPORT
     Route: 041
     Dates: start: 20120725

REACTIONS (1)
  - DEATH [None]
